FAERS Safety Report 22539140 (Version 6)
Quarter: 2025Q3

REPORT INFORMATION
  Report Type: Report from Study
  Country: JP (occurrence: JP)
  Receive Date: 20230609
  Receipt Date: 20250709
  Transmission Date: 20251020
  Serious: Yes (Hospitalization)
  Sender: ABBVIE
  Company Number: JP-ABBVIE-5282613

PATIENT
  Age: 70 Year
  Sex: Female
  Weight: 55 kg

DRUGS (3)
  1. RINVOQ [Suspect]
     Active Substance: UPADACITINIB
     Indication: Rheumatoid arthritis
     Dosage: FORM STRENGTH: 15 MG
     Route: 048
     Dates: start: 20220802, end: 20230520
  2. AMLODIPINE BESYLATE [Concomitant]
     Active Substance: AMLODIPINE BESYLATE
     Indication: Hypertension
     Dosage: 5 MILLIGRAM
     Route: 048
  3. ATORVASTATIN CALCIUM [Concomitant]
     Active Substance: ATORVASTATIN CALCIUM
     Indication: Hyperlipidaemia
     Dosage: 5 MILLIGRAM
     Route: 048

REACTIONS (3)
  - Herpes zoster meningoencephalitis [Recovered/Resolved]
  - Trigeminal palsy [Recovered/Resolved with Sequelae]
  - Tremor [Recovered/Resolved]

NARRATIVE: CASE EVENT DATE: 20230519
